FAERS Safety Report 8503330-7 (Version None)
Quarter: 2012Q3

REPORT INFORMATION
  Report Type: 
  Country: None (occurrence: None)
  Receive Date: 20120702
  Receipt Date: 20120619
  Transmission Date: 20120928
  Serious: Yes (Other)
  Sender: FDA-Public Use
  Company Number: 2012GR0209

PATIENT
  Age: 36 Year
  Sex: Female

DRUGS (3)
  1. STEOIRDS (STEROIDS) [Concomitant]
  2. ANAKINRA (ANAKINRA) [Suspect]
     Indication: DISEASE RECURRENCE
     Dosage: 100 MG(100 MG, 1 IN 1 D)
     Dates: start: 20090901
  3. ANAKINRA (ANAKINRA) [Suspect]
     Indication: PERICARDITIS
     Dosage: 100 MG(100 MG, 1 IN 1 D)
     Dates: start: 20090901

REACTIONS (2)
  - ASPARTATE AMINOTRANSFERASE INCREASED [None]
  - ALANINE AMINOTRANSFERASE INCREASED [None]
